FAERS Safety Report 4602837-2 (Version None)
Quarter: 2005Q1

REPORT INFORMATION
  Report Type: 
  Country: None (occurrence: None)
  Receive Date: 20050307
  Receipt Date: 20050222
  Transmission Date: 20050727
  Serious: Yes (Life-Threatening, Hospitalization)
  Sender: FDA-Public Use
  Company Number: 106060ISR

PATIENT
  Age: 63 Year
  Sex: Male

DRUGS (3)
  1. FLUOROURACIL [Suspect]
     Indication: PANCREATIC CARCINOMA
     Dates: start: 20040908, end: 20040929
  2. GLEEVEC [Suspect]
     Indication: PANCREATIC CARCINOMA
     Dosage: 300 MILLIGRAM ORAL
     Route: 048
     Dates: start: 20040924, end: 20040927
  3. CALCIUM FOLINATE [Concomitant]

REACTIONS (4)
  - DISEASE PROGRESSION [None]
  - DYSPNOEA [None]
  - MYOCARDIAL INFARCTION [None]
  - TACHYCARDIA [None]
